FAERS Safety Report 23152443 (Version 1)
Quarter: 2023Q4

REPORT INFORMATION
  Report Type: Report from Study
  Country: NO (occurrence: None)
  Receive Date: 20231107
  Receipt Date: 20231107
  Transmission Date: 20240110
  Serious: Yes (Life-Threatening, Hospitalization)
  Sender: FDA-Public Use
  Company Number: NO-ROCHE-3450775

PATIENT
  Age: 57 Year
  Sex: Male

DRUGS (22)
  1. PERTUZUMAB\TRASTUZUMAB [Suspect]
     Active Substance: PERTUZUMAB\TRASTUZUMAB
     Indication: Neoplasm malignant
     Dosage: 1200/600 MG
     Route: 065
     Dates: start: 20230110
  2. PERTUZUMAB\TRASTUZUMAB [Suspect]
     Active Substance: PERTUZUMAB\TRASTUZUMAB
     Dosage: 600/600 MG
     Route: 065
     Dates: start: 20230131
  3. PERTUZUMAB\TRASTUZUMAB [Suspect]
     Active Substance: PERTUZUMAB\TRASTUZUMAB
     Route: 065
     Dates: start: 20230302
  4. PERTUZUMAB\TRASTUZUMAB [Suspect]
     Active Substance: PERTUZUMAB\TRASTUZUMAB
     Route: 065
     Dates: start: 20230329
  5. PERTUZUMAB\TRASTUZUMAB [Suspect]
     Active Substance: PERTUZUMAB\TRASTUZUMAB
     Route: 065
     Dates: start: 20230420
  6. PERTUZUMAB\TRASTUZUMAB [Suspect]
     Active Substance: PERTUZUMAB\TRASTUZUMAB
     Route: 065
     Dates: start: 20230515
  7. PERTUZUMAB\TRASTUZUMAB [Suspect]
     Active Substance: PERTUZUMAB\TRASTUZUMAB
     Route: 065
     Dates: start: 20230605
  8. PERTUZUMAB\TRASTUZUMAB [Suspect]
     Active Substance: PERTUZUMAB\TRASTUZUMAB
     Dosage: 600/600 MG
     Route: 065
     Dates: start: 20230626
  9. PERTUZUMAB\TRASTUZUMAB [Suspect]
     Active Substance: PERTUZUMAB\TRASTUZUMAB
     Dosage: 600/600 MG
     Route: 065
     Dates: start: 20230717
  10. PERTUZUMAB\TRASTUZUMAB [Suspect]
     Active Substance: PERTUZUMAB\TRASTUZUMAB
     Dosage: 600/600 MG
     Route: 065
     Dates: start: 20230815
  11. PERTUZUMAB\TRASTUZUMAB [Suspect]
     Active Substance: PERTUZUMAB\TRASTUZUMAB
     Route: 065
     Dates: start: 20230906
  12. DUTASTERIDE\TAMSULOSIN [Concomitant]
     Active Substance: DUTASTERIDE\TAMSULOSIN
     Indication: Benign prostatic hyperplasia
     Dosage: 500+400 MICROGRAM
  13. ELIQUIS [Concomitant]
     Active Substance: APIXABAN
  14. FUROSEMIDE [Concomitant]
     Active Substance: FUROSEMIDE
     Indication: Lymphoedema
     Dates: start: 20221221
  15. OXYCONTIN [Concomitant]
     Active Substance: OXYCODONE HYDROCHLORIDE
     Dates: start: 20230116
  16. OXYCONTIN [Concomitant]
     Active Substance: OXYCODONE HYDROCHLORIDE
     Dates: start: 20230116
  17. OXYCODONE HYDROCHLORIDE [Concomitant]
     Active Substance: OXYCODONE HYDROCHLORIDE
     Dates: start: 20230109
  18. ACETAMINOPHEN [Concomitant]
     Active Substance: ACETAMINOPHEN
  19. BACTRIM [Concomitant]
     Active Substance: SULFAMETHOXAZOLE\TRIMETHOPRIM
     Dosage: 400/80 MG
     Dates: start: 20230209, end: 20230223
  20. AMOXICILLIN [Concomitant]
     Active Substance: AMOXICILLIN
     Indication: Urosepsis
     Dates: start: 20230410, end: 20230411
  21. AMOXICILLIN [Concomitant]
     Active Substance: AMOXICILLIN
     Dates: start: 20230412, end: 20230417
  22. CEFUROXIME [Concomitant]
     Active Substance: CEFUROXIME
     Indication: Urinary tract infection
     Dates: start: 20231002, end: 20231006

REACTIONS (4)
  - Urosepsis [Recovered/Resolved]
  - Haematuria [Recovered/Resolved]
  - Urinary tract infection [Not Recovered/Not Resolved]
  - Skin infection [Recovered/Resolved]

NARRATIVE: CASE EVENT DATE: 20230204
